FAERS Safety Report 9812291 (Version 1)
Quarter: 2014Q1

REPORT INFORMATION
  Report Type: Spontaneous
  Country: US (occurrence: US)
  Receive Date: 20140113
  Receipt Date: 20140113
  Transmission Date: 20141002
  Serious: Yes (Death)
  Sender: FDA-Public Use
  Company Number: US-ASTRAZENECA-2014SE02166

PATIENT
  Age: 50 Year
  Sex: Female

DRUGS (3)
  1. ATENOLOL [Suspect]
     Route: 065
  2. COCAINE [Suspect]
     Route: 065
  3. HYDROMORPHONE [Suspect]
     Route: 065

REACTIONS (3)
  - Toxicity to various agents [Fatal]
  - Completed suicide [Fatal]
  - Cardio-respiratory arrest [Fatal]
